FAERS Safety Report 4960233-2 (Version None)
Quarter: 2006Q1

REPORT INFORMATION
  Report Type: 
  Country: None (occurrence: None)
  Receive Date: 20060328
  Receipt Date: 20060315
  Transmission Date: 20060701
  Serious: Yes (Hospitalization, Other)
  Sender: FDA-Public Use
  Company Number: 2006036387

PATIENT
  Age: 52 Year
  Sex: Female
  Weight: 56.6996 kg

DRUGS (2)
  1. DETROL LA [Suspect]
     Indication: HYPERTONIC BLADDER
     Dosage: 4 MG (4 MG, 1 IN 1 D), ORAL
     Route: 048
  2. DITROPAN [Suspect]
     Indication: HYPERTONIC BLADDER
     Dates: start: 20050101, end: 20060301

REACTIONS (3)
  - BONE DENSITY DECREASED [None]
  - CHAPPED LIPS [None]
  - DRY MOUTH [None]
